FAERS Safety Report 10048435 (Version 2)
Quarter: 2014Q2

REPORT INFORMATION
  Report Type: Report from Study
  Country: JP (occurrence: JP)
  Receive Date: 20140331
  Receipt Date: 20140522
  Transmission Date: 20141212
  Serious: Yes (Death)
  Sender: FDA-Public Use
  Company Number: JP-JNJFOC-20140318902

PATIENT
  Sex: Male
  Weight: 78 kg

DRUGS (9)
  1. ITRIZOLE [Suspect]
     Indication: ANTIFUNGAL PROPHYLAXIS
     Route: 048
     Dates: end: 20121101
  2. ITRIZOLE [Suspect]
     Indication: ANTIFUNGAL PROPHYLAXIS
     Route: 048
     Dates: start: 20120727, end: 20121031
  3. VIDAZA [Concomitant]
     Indication: MYELODYSPLASTIC SYNDROME
     Route: 065
     Dates: start: 20120928, end: 20121004
  4. VIDAZA [Concomitant]
     Indication: MYELODYSPLASTIC SYNDROME
     Route: 065
     Dates: start: 20120727, end: 20120802
  5. OMEPRAL [Concomitant]
     Indication: PROPHYLAXIS
     Route: 048
     Dates: start: 20120727
  6. MEROPEN (MEROPENEM TRIHYDRATE) [Concomitant]
     Indication: MYELODYSPLASTIC SYNDROME
     Route: 065
     Dates: start: 20120813, end: 20120819
  7. MEROPEN (MEROPENEM TRIHYDRATE) [Concomitant]
     Indication: MYELODYSPLASTIC SYNDROME
     Route: 065
     Dates: start: 20120730, end: 20120806
  8. CEFEPIME DIHYDROCHLORIDE [Concomitant]
     Indication: MYELODYSPLASTIC SYNDROME
     Route: 065
     Dates: start: 20120820, end: 20120903
  9. FINIBAX [Concomitant]
     Indication: MYELODYSPLASTIC SYNDROME
     Route: 065
     Dates: start: 20120911, end: 20120919

REACTIONS (1)
  - Myelodysplastic syndrome [Fatal]
